FAERS Safety Report 14250663 (Version 1)
Quarter: 2017Q4

REPORT INFORMATION
  Report Type: Spontaneous
  Country: US (occurrence: US)
  Receive Date: 20171205
  Receipt Date: 20171205
  Transmission Date: 20180321
  Serious: No
  Sender: FDA-Public Use
  Company Number: US-ENDO PHARMACEUTICALS INC-2016-007128

PATIENT
  Sex: Female
  Weight: 95.25 kg

DRUGS (1)
  1. ALPRAZOLAM TABLETS 2 MG [Suspect]
     Active Substance: ALPRAZOLAM
     Indication: NEURALGIA
     Dosage: 1 TABLET , BID
     Route: 048
     Dates: start: 20161108

REACTIONS (2)
  - Drug dispensing error [Unknown]
  - Drug ineffective for unapproved indication [Unknown]
